FAERS Safety Report 16421733 (Version 2)
Quarter: 2019Q2

REPORT INFORMATION
  Report Type: Spontaneous
  Country: JP (occurrence: JP)
  Receive Date: 20190612
  Receipt Date: 20190624
  Transmission Date: 20190711
  Serious: Yes (Other)
  Sender: FDA-Public Use
  Company Number: JP-SEATTLE GENETICS-2019SGN02018

PATIENT
  Age: 68 Year
  Sex: Male

DRUGS (1)
  1. ADCETRIS [Suspect]
     Active Substance: BRENTUXIMAB VEDOTIN
     Indication: HODGKIN^S DISEASE
     Dosage: 1.8 MILLIGRAM, Q3WEEKS
     Route: 041
     Dates: start: 20181022

REACTIONS (2)
  - Hodgkin^s disease [Unknown]
  - Disease progression [Unknown]

NARRATIVE: CASE EVENT DATE: 201905
